FAERS Safety Report 19085873 (Version 1)
Quarter: 2021Q2

REPORT INFORMATION
  Report Type: Report from Study
  Country: US (occurrence: US)
  Receive Date: 20210402
  Receipt Date: 20210402
  Transmission Date: 20210717
  Serious: No
  Sender: FDA-Public Use
  Company Number: US-ACADIA PHARMACEUTICALS INC.-ACA-2021-PIM-000946

PATIENT
  Sex: Male

DRUGS (9)
  1. MEMANTINE. [Concomitant]
     Active Substance: MEMANTINE
  2. SINEMET [Concomitant]
     Active Substance: CARBIDOPA\LEVODOPA
  3. LOSARTAN. [Concomitant]
     Active Substance: LOSARTAN
  4. PRAVASTATIN. [Concomitant]
     Active Substance: PRAVASTATIN
  5. OMEPRAZOLE. [Concomitant]
     Active Substance: OMEPRAZOLE
  6. NUPLAZID [Suspect]
     Active Substance: PIMAVANSERIN TARTRATE
     Indication: PARKINSON^S DISEASE
     Dosage: 34 MILLIGRAM, QD
     Route: 048
     Dates: start: 20210115
  7. SULFASALAZINE. [Concomitant]
     Active Substance: SULFASALAZINE
  8. DONEPEZIL. [Concomitant]
     Active Substance: DONEPEZIL
  9. FLUTICASONE. [Concomitant]
     Active Substance: FLUTICASONE

REACTIONS (2)
  - Abnormal behaviour [Unknown]
  - Sleep disorder [Unknown]
